FAERS Safety Report 7471643-6 (Version None)
Quarter: 2011Q2

REPORT INFORMATION
  Report Type: 
  Country: None (occurrence: None)
  Receive Date: 20110502
  Receipt Date: 20110421
  Transmission Date: 20111010
  Serious: Yes (Other)
  Sender: FDA-Public Use
  Company Number: 2011P1005898

PATIENT
  Age: 6 Year
  Sex: Male
  Weight: 17.6903 kg

DRUGS (1)
  1. LORATADINE [Suspect]
     Indication: HYPERSENSITIVITY
     Dosage: 2 TSP;X1;PO
     Route: 048
     Dates: start: 20110408, end: 20110408

REACTIONS (2)
  - GRAND MAL CONVULSION [None]
  - CARDIAC MURMUR [None]
